FAERS Safety Report 8091377-7 (Version None)
Quarter: 2012Q1

REPORT INFORMATION
  Report Type: 
  Country: None (occurrence: None)
  Receive Date: 20120129
  Receipt Date: 20111014
  Transmission Date: 20120608
  Serious: No
  Sender: FDA-Public Use
  Company Number: US-ABBOTT-11P-163-0848375-00

PATIENT
  Age: 58 Year
  Sex: Female

DRUGS (25)
  1. VITAMIN B-12 [Concomitant]
     Indication: PRODUCT USED FOR UNKNOWN INDICATION
     Route: 050
  2. BUDITROTRION SR [Concomitant]
     Indication: PRODUCT USED FOR UNKNOWN INDICATION
  3. IMODIUM [Concomitant]
     Indication: PRODUCT USED FOR UNKNOWN INDICATION
     Dosage: 2-3 TIMES DAILY
  4. CALCIUM [Concomitant]
     Indication: PRODUCT USED FOR UNKNOWN INDICATION
  5. LOPERAMIDE HCL [Concomitant]
     Indication: DIARRHOEA
     Dosage: 2.5 MG 2 TABS Q 6 HOURS PRN
  6. HUMIRA [Suspect]
     Dosage: ON DAY 15
  7. FIORICET [Suspect]
     Indication: MIGRAINE
     Dosage: 1 TAB FOUR TIMES DAILY PRN
  8. VITAMIN D [Concomitant]
     Indication: PRODUCT USED FOR UNKNOWN INDICATION
     Dosage: 5000 IU 1 CAPSULE DAILY
  9. VENTOLIN [Concomitant]
     Indication: ASTHMA
     Route: 055
  10. OMEPRAZOLE [Concomitant]
     Indication: GASTROOESOPHAGEAL REFLUX DISEASE
     Dosage: 20 MG 2 TABS DAILY
  11. LEVOTHYROXINE SODIUM [Concomitant]
     Indication: PRODUCT USED FOR UNKNOWN INDICATION
  12. PAMINE [Concomitant]
     Indication: MUSCLE SPASMS
     Dosage: 2.5 MG 2 TABS Q 6 HOURS PRN
  13. PAMINE [Concomitant]
     Indication: PAIN
  14. DIGESTIVE ADVANTAGE (LACTOSE AND PROBIOTICS) [Concomitant]
     Indication: PRODUCT USED FOR UNKNOWN INDICATION
  15. HUMIRA [Suspect]
     Dosage: 40 MG EOW
  16. LORAZEPAM [Concomitant]
     Indication: INSOMNIA
  17. LOSARTAN POTASSIUM [Concomitant]
     Indication: HYPERTENSION
  18. FISH OIL [Concomitant]
     Indication: PRODUCT USED FOR UNKNOWN INDICATION
     Dosage: 1000 IU CAPSULE DAILY
  19. HUMIRA [Suspect]
     Indication: CROHN'S DISEASE
     Dosage: ON DAY 1
     Dates: start: 20110802, end: 20110802
  20. LOMOTIL [Concomitant]
     Indication: PRODUCT USED FOR UNKNOWN INDICATION
  21. VERAPAMIL HYDROCHLORIDE [Concomitant]
     Indication: HYPERTENSION
     Dosage: DAILY
  22. LORAZEPAM [Concomitant]
     Indication: ANXIETY
  23. BUTALB/APAP/CAFFEINE [Concomitant]
     Indication: PRODUCT USED FOR UNKNOWN INDICATION
     Dosage: 5/325/40MG
  24. LORAZEPAM [Concomitant]
     Indication: PANIC ATTACK
     Dosage: 1 MG:1-2 TABS WITH MAX DOSE 4 DAILY PRN
  25. WELLBUTRIN [Concomitant]
     Indication: PRODUCT USED FOR UNKNOWN INDICATION

REACTIONS (10)
  - LOCALISED OEDEMA [None]
  - CONTUSION [None]
  - EMOTIONAL DISTRESS [None]
  - INSOMNIA [None]
  - PRURITUS [None]
  - OEDEMA PERIPHERAL [None]
  - ENERGY INCREASED [None]
  - URINE OUTPUT DECREASED [None]
  - PARAESTHESIA [None]
  - TINNITUS [None]
